FAERS Safety Report 4480100-0 (Version None)
Quarter: 2004Q4

REPORT INFORMATION
  Report Type: 
  Country: None (occurrence: None)
  Receive Date: 20041018
  Receipt Date: 20041004
  Transmission Date: 20050328
  Serious: Yes (Congenital Anomaly, Other)
  Sender: FDA-Public Use
  Company Number: 2004064986

PATIENT
  Age: 64 Year
  Sex: Female

DRUGS (7)
  1. GLUCOTROL XL [Suspect]
     Indication: DIABETES MELLITUS
     Dosage: 20 MG (10 MG, 2 IN 1 D), ORAL
     Route: 048
     Dates: start: 20040825
  2. KETOROLAC [Suspect]
     Indication: EYE INFLAMMATION
     Dosage: OPHTHALMIC
     Route: 047
     Dates: start: 20040825
  3. ROSUVASTATIN (ROSUVASTATIN) [Concomitant]
  4. IRBESARTAN (IRBERSARTAN) [Concomitant]
  5. ATENOLOL [Concomitant]
  6. RAMIPRIL [Concomitant]
  7. OMEPRAZOLE [Concomitant]

REACTIONS (4)
  - DIABETES MELLITUS INADEQUATE CONTROL [None]
  - DRUG INTERACTION [None]
  - TREATMENT NONCOMPLIANCE [None]
  - WEIGHT DECREASED [None]
